FAERS Safety Report 5858859-7 (Version None)
Quarter: 2008Q3

REPORT INFORMATION
  Report Type: 
  Country: None (occurrence: None)
  Receive Date: 20080825
  Receipt Date: 20080807
  Transmission Date: 20090109
  Serious: Yes (Death, Hospitalization)
  Sender: FDA-Public Use
  Company Number: 2008AL004703

PATIENT
  Age: 66 Year
  Sex: Female
  Weight: 56.6996 kg

DRUGS (12)
  1. DIGOXIN [Suspect]
     Indication: ATRIAL FIBRILLATION
     Dosage: 0.125MG, DAILY, PO, YEARS
     Route: 048
  2. COUMADIN [Concomitant]
  3. CORGARD [Concomitant]
  4. ZOCOR [Concomitant]
  5. SYNTHROID [Concomitant]
  6. LORAZEPAM [Concomitant]
  7. HYDROXYTINE [Concomitant]
  8. NADOLOL [Concomitant]
  9. NIFEDINE [Concomitant]
  10. SENNA [Concomitant]
  11. WARFARIN SODIUM [Concomitant]
  12. ATIVAN [Concomitant]

REACTIONS (20)
  - ABDOMINAL PAIN UPPER [None]
  - ASTHENIA [None]
  - BRADYCARDIA [None]
  - CONFUSIONAL STATE [None]
  - COUGH [None]
  - DELIRIUM [None]
  - FALL [None]
  - HEAD INJURY [None]
  - HEART RATE INCREASED [None]
  - HEART RATE IRREGULAR [None]
  - HYPERTHYROIDISM [None]
  - INTERNATIONAL NORMALISED RATIO ABNORMAL [None]
  - LETHARGY [None]
  - LOSS OF CONSCIOUSNESS [None]
  - MAJOR DEPRESSION [None]
  - MULTIPLE DRUG OVERDOSE [None]
  - PROTHROMBIN TIME ABNORMAL [None]
  - RENAL FAILURE [None]
  - SUICIDE ATTEMPT [None]
  - THERAPEUTIC AGENT TOXICITY [None]
